FAERS Safety Report 24423469 (Version 1)
Quarter: 2024Q4

REPORT INFORMATION
  Report Type: Spontaneous
  Country: US (occurrence: US)
  Receive Date: 20241010
  Receipt Date: 20241010
  Transmission Date: 20250115
  Serious: No
  Sender: PFIZER
  Company Number: US-PFIZER INC-PV202400130533

PATIENT
  Age: 74 Year
  Sex: Female

DRUGS (1)
  1. IBRANCE [Suspect]
     Active Substance: PALBOCICLIB
     Indication: Breast cancer metastatic
     Dosage: 100 MG TABLET DAILY FOR 21 DAYS FOLLOWED BY 7 DAYS OFF
     Route: 048
     Dates: start: 20240709

REACTIONS (21)
  - White blood cell count decreased [Unknown]
  - Red blood cell count decreased [Unknown]
  - Haemoglobin decreased [Unknown]
  - Haematocrit decreased [Unknown]
  - Mean cell haemoglobin concentration decreased [Unknown]
  - Platelet count decreased [Unknown]
  - Red cell distribution width increased [Unknown]
  - Neutrophil count decreased [Unknown]
  - Monocyte count decreased [Unknown]
  - Neutrophil percentage decreased [Unknown]
  - Lymphocyte percentage increased [Unknown]
  - Blood sodium decreased [Unknown]
  - Blood chloride increased [Unknown]
  - Carbon dioxide decreased [Unknown]
  - Blood glucose increased [Unknown]
  - Blood urea increased [Unknown]
  - Blood creatinine increased [Unknown]
  - Blood calcium decreased [Unknown]
  - Carbohydrate antigen 15-3 increased [Unknown]
  - Lactose intolerance [Unknown]
  - Drug hypersensitivity [Unknown]

NARRATIVE: CASE EVENT DATE: 20240724
